FAERS Safety Report 7041124-2 (Version None)
Quarter: 2010Q4

REPORT INFORMATION
  Report Type: 
  Country: None (occurrence: None)
  Receive Date: 20101013
  Receipt Date: 20101004
  Transmission Date: 20110411
  Serious: Yes (Hospitalization)
  Sender: FDA-Public Use
  Company Number: FR-JNJFOC-20100604275

PATIENT
  Sex: Male
  Weight: 61 kg

DRUGS (3)
  1. HALDOL [Suspect]
     Indication: SCHIZOPHRENIA
     Route: 030
     Dates: start: 20100309, end: 20100604
  2. HALDOL [Suspect]
     Indication: PSYCHOTIC DISORDER
     Route: 030
     Dates: start: 20100309, end: 20100604
  3. HALDOL [Suspect]
     Indication: DELIRIUM
     Route: 030
     Dates: start: 20100309, end: 20100604

REACTIONS (6)
  - BLOOD CREATINE PHOSPHOKINASE INCREASED [None]
  - MUSCLE CONTRACTURE [None]
  - OFF LABEL USE [None]
  - OVERDOSE [None]
  - PROTRUSION TONGUE [None]
  - SALIVARY HYPERSECRETION [None]
